FAERS Safety Report 10310950 (Version 2)
Quarter: 2014Q3

REPORT INFORMATION
  Report Type: Spontaneous
  Country: US (occurrence: US)
  Receive Date: 20140717
  Receipt Date: 20140724
  Transmission Date: 20150326
  Serious: Yes (Other)
  Sender: FDA-Public Use
  Company Number: US-LUNDBECK-DKLU1101133

PATIENT
  Sex: Female

DRUGS (6)
  1. ONFI [Suspect]
     Active Substance: CLOBAZAM
     Indication: EPILEPSY
     Route: 048
     Dates: start: 20140515
  2. ONFI [Suspect]
     Active Substance: CLOBAZAM
     Indication: LENNOX-GASTAUT SYNDROME
     Route: 048
  3. ONFI [Suspect]
     Active Substance: CLOBAZAM
     Route: 048
     Dates: end: 20140714
  4. ONFI [Suspect]
     Active Substance: CLOBAZAM
     Route: 048
  5. ONFI [Suspect]
     Active Substance: CLOBAZAM
     Route: 048
  6. DEPAKOTE [Concomitant]
     Active Substance: DIVALPROEX SODIUM
     Indication: PRODUCT USED FOR UNKNOWN INDICATION

REACTIONS (5)
  - Eating disorder [Unknown]
  - Sluggishness [Unknown]
  - Motor dysfunction [Unknown]
  - Abasia [Unknown]
  - Insomnia [Unknown]
